FAERS Safety Report 23799261 (Version 1)
Quarter: 2024Q2

REPORT INFORMATION
  Report Type: Spontaneous
  Country: US (occurrence: None)
  Receive Date: 20240428
  Receipt Date: 20240428
  Transmission Date: 20240716
  Serious: Yes (Hospitalization)
  Sender: FDA-Public Use
  Company Number: None

PATIENT
  Age: 78 Year
  Sex: Male
  Weight: 103 kg

DRUGS (1)
  1. NIRMATRELVIR\RITONAVIR [Suspect]
     Active Substance: NIRMATRELVIR\RITONAVIR
     Indication: Upper respiratory tract infection
     Dosage: OTHER QUANTITY : 300/100 MG;?FREQUENCY : TWICE A DAY;?
     Route: 048
     Dates: start: 20230420, end: 20230421

REACTIONS (6)
  - Dehydration [None]
  - Liver function test increased [None]
  - Acute kidney injury [None]
  - Rhabdomyolysis [None]
  - Asthenia [None]
  - Blood glucose increased [None]
